FAERS Safety Report 8443218 (Version 4)
Quarter: 2013Q3

REPORT INFORMATION
  Report Type: Spontaneous
  Country: US (occurrence: US)
  Receive Date: 20120306
  Receipt Date: 20130719
  Transmission Date: 20140515
  Serious: Yes (Other)
  Sender: FDA-Public Use
  Company Number: US-PFIZER INC-2010167864

PATIENT
  Age: 80 Year
  Sex: Female
  Weight: 82 kg

DRUGS (5)
  1. CELEBREX [Suspect]
     Indication: ARTHRITIS
     Dosage: 200 MG, 1X/DAY
     Route: 048
  2. LASIX [Concomitant]
     Indication: FLUID IMBALANCE
     Dosage: UNK
  3. LASIX [Concomitant]
     Indication: LOCAL SWELLING
  4. LASIX [Concomitant]
     Indication: JOINT SWELLING
  5. DEGITON [Concomitant]
     Dosage: UNK

REACTIONS (9)
  - Oxygen supplementation [Unknown]
  - Abasia [Unknown]
  - Hypoacusis [Unknown]
  - Malaise [Unknown]
  - Malaise [Recovered/Resolved]
  - Arthritis [Unknown]
  - Confusional state [Unknown]
  - Ear pain [Unknown]
  - Arthropod bite [Unknown]
